FAERS Safety Report 18382713 (Version 3)
Quarter: 2020Q4

REPORT INFORMATION
  Report Type: Report from Study
  Country: None (occurrence: ES)
  Receive Date: 20201014
  Receipt Date: 20201212
  Transmission Date: 20210114
  Serious: Yes (Hospitalization)
  Sender: FDA-Public Use
  Company Number: ES-ABBVIE-20K-144-3607305-00

PATIENT
  Age: 76 Year
  Sex: Female

DRUGS (2)
  1. DUODOPA [Suspect]
     Active Substance: CARBIDOPA\LEVODOPA
     Indication: PARKINSON^S DISEASE
     Route: 050
     Dates: start: 20191219
  2. DUODOPA [Suspect]
     Active Substance: CARBIDOPA\LEVODOPA

REACTIONS (6)
  - Bedridden [Unknown]
  - Mobility decreased [Unknown]
  - Hip fracture [Recovering/Resolving]
  - Rib fracture [Recovering/Resolving]
  - Asymptomatic COVID-19 [Unknown]
  - Fall [Unknown]

NARRATIVE: CASE EVENT DATE: 202010
